FAERS Safety Report 4695722-1 (Version None)
Quarter: 2005Q2

REPORT INFORMATION
  Report Type: 
  Country: None (occurrence: None)
  Receive Date: 20050617
  Receipt Date: 20050617
  Transmission Date: 20051028
  Serious: No
  Sender: FDA-Public Use
  Company Number: None

PATIENT

DRUGS (2)
  1. ORVATEN 5 MG UPSHER-SMITH LAB [Suspect]
  2. JANTOVEN 5 MG  UPSHER-SMITH LAB [Suspect]

REACTIONS (1)
  - MEDICATION ERROR [None]
